FAERS Safety Report 15339077 (Version 1)
Quarter: 2018Q4

REPORT INFORMATION
  Report Type: Spontaneous
  Country: IL (occurrence: IL)
  Receive Date: 20180831
  Receipt Date: 20180831
  Transmission Date: 20190204
  Serious: No
  Sender: FDA-Public Use
  Company Number: IL-B. BRAUN MEDICAL INC.-2054524

PATIENT
  Age: 23 Year
  Sex: Female

DRUGS (1)
  1. METRONIDAZOLE INJECTION 0.5% IN GLASS [Suspect]
     Active Substance: METRONIDAZOLE
     Route: 042

REACTIONS (3)
  - Pruritus generalised [None]
  - Dyspnoea [None]
  - Rash generalised [None]
